FAERS Safety Report 8670590 (Version 2)
Quarter: 2013Q3

REPORT INFORMATION
  Report Type: Spontaneous
  Country: US (occurrence: US)
  Receive Date: 20120718
  Receipt Date: 20130805
  Transmission Date: 20140515
  Serious: Yes (Hospitalization)
  Sender: FDA-Public Use
  Company Number: US-GENZYME-FABR-1002627

PATIENT
  Age: 40 Year
  Sex: Male
  Weight: 67 kg

DRUGS (15)
  1. FABRAZYME [Suspect]
     Indication: FABRY^S DISEASE
     Dosage: 1 MG/KG, Q2W
     Route: 042
     Dates: start: 2002
  2. FABRAZYME [Suspect]
     Dosage: UNK (REDUCED DOSE DURING FABRAZYME SHORTAGE)
     Route: 042
     Dates: start: 200907
  3. AMLODIPINE [Concomitant]
     Indication: HYPERTENSION
     Dosage: 10 MG, QD
     Route: 065
  4. ASPIRIN [Concomitant]
     Indication: ANTICOAGULANT THERAPY
     Dosage: 81 MG, QD
     Route: 065
  5. CALCITRIOL [Concomitant]
     Indication: SUPPLEMENTATION THERAPY
     Dosage: 0.5 MCG, 3X/W
     Route: 065
  6. KEFLEX [Concomitant]
     Indication: ANTIBIOTIC PROPHYLAXIS
     Dosage: 500 MG, BID
     Route: 065
  7. SENSIPAR [Concomitant]
     Indication: THYROID DISORDER
     Dosage: 180 MG, QD
     Route: 065
  8. COLACE [Concomitant]
     Indication: DRUG THERAPY
     Dosage: 100 MG, BID
     Route: 065
  9. PROCRIT [Concomitant]
     Indication: ANAEMIA
     Dosage: 12000 U, 3X/W
     Route: 042
  10. LOSARTAN [Concomitant]
     Indication: HYPERTENSION
     Dosage: 50 MG, QD
     Route: 065
  11. MULTIVITAMIN [Concomitant]
     Indication: SUPPLEMENTATION THERAPY
     Dosage: UNK (DAILY)
     Route: 065
  12. PRAMIPEXOLE [Concomitant]
     Indication: PRODUCT USED FOR UNKNOWN INDICATION
     Dosage: 2 MG, QHS
     Route: 065
  13. PREDNISONE [Concomitant]
     Indication: UNEVALUABLE EVENT
     Dosage: 5 MG, QD
     Route: 065
  14. RENVELA [Concomitant]
     Indication: PRODUCT USED FOR UNKNOWN INDICATION
     Dosage: 2400 MG, TID
     Route: 065
  15. TEMAZEPAM [Concomitant]
     Indication: PRODUCT USED FOR UNKNOWN INDICATION
     Dosage: UNK (15-30 MG QHS)
     Route: 065

REACTIONS (2)
  - VIIth nerve paralysis [Recovered/Resolved]
  - Cerebrovascular accident [Recovered/Resolved]
